FAERS Safety Report 6255722-7 (Version None)
Quarter: 2009Q3

REPORT INFORMATION
  Report Type: 
  Country: None (occurrence: None)
  Receive Date: 20090701
  Receipt Date: 20090619
  Transmission Date: 20100115
  Serious: Yes (Life-Threatening)
  Sender: FDA-Public Use
  Company Number: 1000007094

PATIENT
  Age: 73 Year
  Sex: Male

DRUGS (4)
  1. CITALOPRAM HYDROBROMIDE [Suspect]
     Indication: DEPRESSION
     Dosage: 40 MG (40 MG, 1 IN 1 D), INTRAVENOUS
     Route: 042
     Dates: start: 20090501, end: 20090507
  2. CITALOPRAM HYDROBROMIDE [Suspect]
     Indication: DEPRESSION
     Dosage: 10 MG TITRATED UP TO 40 MG (1 IN 1 D); 20 MG (20 MG, 1 IN 1 D), INTRAVENOUS (NOT OTHERWISE SPECIFIED
     Route: 042
     Dates: start: 20090426, end: 20090430
  3. CITALOPRAM HYDROBROMIDE [Suspect]
     Indication: DEPRESSION
     Dosage: 10 MG TITRATED UP TO 40 MG (1 IN 1 D); 20 MG (20 MG, 1 IN 1 D), INTRAVENOUS (NOT OTHERWISE SPECIFIED
     Route: 042
     Dates: start: 20090508
  4. RIMIFON [Suspect]
     Indication: PULMONARY TUBERCULOSIS
     Dosage: 150 MG (150 MG, 1 IN 1 D), INTRAVENOUS (NOT OTHERWISE SPECIFIED)
     Route: 042
     Dates: start: 20090410, end: 20090508

REACTIONS (1)
  - SEROTONIN SYNDROME [None]
